FAERS Safety Report 9607613 (Version 2)
Quarter: 2013Q4

REPORT INFORMATION
  Report Type: Report from Study
  Country: JP (occurrence: JP)
  Receive Date: 20131009
  Receipt Date: 20131028
  Transmission Date: 20140711
  Serious: Yes (Other)
  Sender: FDA-Public Use
  Company Number: PHHY2013JP112425

PATIENT
  Sex: 0

DRUGS (4)
  1. LEPONEX / CLOZARIL [Suspect]
     Indication: SCHIZOPHRENIA
     Dosage: 300 MG, DAILY
     Route: 048
  2. LEPONEX / CLOZARIL [Suspect]
     Dosage: 125 MG, DAILY
     Route: 048
  3. LEPONEX / CLOZARIL [Suspect]
     Dosage: 75 MG, DAILY
     Route: 048
  4. LEPONEX / CLOZARIL [Suspect]
     Dosage: UNK
     Route: 048

REACTIONS (4)
  - Psychiatric symptom [Unknown]
  - Condition aggravated [Unknown]
  - Left ventricular dysfunction [Unknown]
  - Electrocardiogram abnormal [Unknown]
